FAERS Safety Report 23224915 (Version 1)
Quarter: 2023Q4

REPORT INFORMATION
  Report Type: Spontaneous
  Country: US (occurrence: US)
  Receive Date: 20231124
  Receipt Date: 20231124
  Transmission Date: 20240109
  Serious: Yes (Hospitalization)
  Sender: FDA-Public Use
  Company Number: US-AVET LIFESCIENCES LTD-2023-AVET-000340

PATIENT
  Sex: Male

DRUGS (4)
  1. AMANTADINE HYDROCHLORIDE [Suspect]
     Active Substance: AMANTADINE HYDROCHLORIDE
     Indication: Hereditary ataxia
     Dosage: 400 MILLIGRAM DAILY
  2. AMANTADINE HYDROCHLORIDE [Suspect]
     Active Substance: AMANTADINE HYDROCHLORIDE
     Dosage: 400 MILLIGRAM RESUMED VIA OROGASTRIC TUBE ON HOSPITAL DAY 12
  3. AMANTADINE HYDROCHLORIDE [Suspect]
     Active Substance: AMANTADINE HYDROCHLORIDE
     Dosage: 300 MILLIGRAM DAILY VIA PERCUTANEOUS ENDOSCOPIC GASTROSTOMY TUBE
  4. RILUZOLE [Concomitant]
     Active Substance: RILUZOLE
     Dosage: 100 MILLIGRAM DAILY

REACTIONS (4)
  - Disease progression [Unknown]
  - Withdrawal syndrome [Unknown]
  - Pneumonia aspiration [Recovering/Resolving]
  - Off label use [Unknown]
